FAERS Safety Report 15729310 (Version 1)
Quarter: 2018Q4

REPORT INFORMATION
  Report Type: Spontaneous
  Country: GB (occurrence: GB)
  Receive Date: 20181217
  Receipt Date: 20181217
  Transmission Date: 20190205
  Serious: Yes (Other)
  Sender: FDA-Public Use
  Company Number: GB-009507513-1812GBR007315

PATIENT
  Age: 2 Year
  Sex: Male

DRUGS (8)
  1. EMERADE [Concomitant]
  2. CLENIL MODULITE [Concomitant]
     Active Substance: BECLOMETHASONE DIPROPIONATE
  3. ALBUTEROL. [Concomitant]
     Active Substance: ALBUTEROL
  4. FUCIDIN (FUSIDATE SODIUM) [Concomitant]
     Active Substance: FUSIDATE SODIUM
  5. ZEROBASE [Concomitant]
  6. CETIRIZINE HYDROCHLORIDE. [Concomitant]
     Active Substance: CETIRIZINE HYDROCHLORIDE
  7. DIPROSONE [Concomitant]
     Active Substance: BETAMETHASONE DIPROPIONATE
  8. MONTELUKAST SODIUM. [Suspect]
     Active Substance: MONTELUKAST SODIUM
     Indication: ASTHMA
     Dosage: 1 DOSAGE FORM, QD
     Route: 048
     Dates: start: 20160201, end: 20180210

REACTIONS (5)
  - Aggression [Recovering/Resolving]
  - Insomnia [Recovering/Resolving]
  - Sleep terror [Recovering/Resolving]
  - Depressed mood [Unknown]
  - Social anxiety disorder [Recovering/Resolving]

NARRATIVE: CASE EVENT DATE: 20160210
